FAERS Safety Report 7080511-3 (Version None)
Quarter: 2010Q4

REPORT INFORMATION
  Report Type: 
  Country: None (occurrence: None)
  Receive Date: 20101025
  Receipt Date: 20101013
  Transmission Date: 20110411
  Serious: Yes (Hospitalization)
  Sender: FDA-Public Use
  Company Number: TPA2010A05319

PATIENT
  Age: 46 Year
  Sex: Male
  Weight: 118.3888 kg

DRUGS (3)
  1. ULORIC [Suspect]
     Indication: GOUT
     Dosage: 40 MG, 1 IN 1 D, PER ORAL ; 80 MG, 1 IN 1 D, PER ORAL
     Route: 048
     Dates: end: 20100928
  2. ULORIC [Suspect]
     Indication: GOUT
     Dosage: 40 MG, 1 IN 1 D, PER ORAL ; 80 MG, 1 IN 1 D, PER ORAL
     Route: 048
     Dates: start: 20090814
  3. OXYCODONE HCL [Concomitant]

REACTIONS (2)
  - ACUTE HEPATIC FAILURE [None]
  - WHITE BLOOD CELL COUNT INCREASED [None]
